FAERS Safety Report 19301837 (Version 1)
Quarter: 2021Q2

REPORT INFORMATION
  Report Type: Spontaneous
  Country: US (occurrence: US)
  Receive Date: 20210524
  Receipt Date: 20210524
  Transmission Date: 20210717
  Serious: Yes (Other)
  Sender: FDA-Public Use
  Company Number: US-PURDUE-USA-2020-0180601

PATIENT
  Sex: Male

DRUGS (10)
  1. DILAUDID [Suspect]
     Active Substance: HYDROMORPHONE HYDROCHLORIDE
     Indication: PRODUCT USED FOR UNKNOWN INDICATION
     Dosage: UNK
     Route: 048
  2. TRAMADOL. [Suspect]
     Active Substance: TRAMADOL
     Indication: PRODUCT USED FOR UNKNOWN INDICATION
     Dosage: UNK
     Route: 065
  3. MORPHINE SULFATE EXTENDED?RELEASE TABLETS (RHODES 74?769, 74?862) [Suspect]
     Active Substance: MORPHINE SULFATE
     Indication: PRODUCT USED FOR UNKNOWN INDICATION
     Dosage: UNK
     Route: 048
  4. OXYCONTIN [Suspect]
     Active Substance: OXYCODONE HYDROCHLORIDE
     Indication: PRODUCT USED FOR UNKNOWN INDICATION
     Dosage: UNK
     Route: 048
  5. OXYCODONE HCL TABLETS (RHODES 91?490) [Suspect]
     Active Substance: OXYCODONE HYDROCHLORIDE
     Indication: PRODUCT USED FOR UNKNOWN INDICATION
     Dosage: UNK
     Route: 048
  6. OXYCODONE/ ACETAMINOPHEN TABLETS [Suspect]
     Active Substance: ACETAMINOPHEN\OXYCODONE HYDROCHLORIDE
     Indication: PRODUCT USED FOR UNKNOWN INDICATION
     Dosage: UNK
     Route: 048
  7. MS CONTIN [Suspect]
     Active Substance: MORPHINE SULFATE
     Indication: PRODUCT USED FOR UNKNOWN INDICATION
     Dosage: UNK
     Route: 048
  8. OXYCODONE HCL CR TABLETS (SIMILAR TO NDA 22?272) [Suspect]
     Active Substance: OXYCODONE HYDROCHLORIDE
     Indication: PRODUCT USED FOR UNKNOWN INDICATION
     Dosage: UNK
     Route: 048
  9. HYDROCODONE BITARTRATE AND ACETAMINOPHEN [Suspect]
     Active Substance: ACETAMINOPHEN\HYDROCODONE BITARTRATE
     Indication: PRODUCT USED FOR UNKNOWN INDICATION
     Dosage: UNK
     Route: 048
  10. OXYIR [Suspect]
     Active Substance: OXYCODONE HYDROCHLORIDE
     Indication: PRODUCT USED FOR UNKNOWN INDICATION
     Dosage: UNK
     Route: 065

REACTIONS (33)
  - Insomnia [Unknown]
  - Dizziness [Unknown]
  - Dysarthria [Unknown]
  - Memory impairment [Unknown]
  - Confusional state [Unknown]
  - Mood altered [Unknown]
  - Myalgia [Unknown]
  - Fatigue [Unknown]
  - Sexual dysfunction [Unknown]
  - Tinnitus [Unknown]
  - Depression [Unknown]
  - Aggression [Unknown]
  - Muscle twitching [Unknown]
  - Nasopharyngitis [Unknown]
  - Abnormal dreams [Unknown]
  - Muscle spasms [Unknown]
  - Dysuria [Unknown]
  - Drug dependence [Unknown]
  - Agitation [Unknown]
  - Neck pain [Unknown]
  - Hypoaesthesia [Unknown]
  - Palpitations [Unknown]
  - Delusion [Unknown]
  - Clumsiness [Unknown]
  - Asthenia [Unknown]
  - Dental caries [Unknown]
  - Anxiety [Unknown]
  - Constipation [Unknown]
  - Sleep apnoea syndrome [Unknown]
  - Restlessness [Unknown]
  - Emotional distress [Unknown]
  - Paraesthesia [Unknown]
  - Cold sweat [Unknown]
